FAERS Safety Report 4372957-9 (Version None)
Quarter: 2004Q2

REPORT INFORMATION
  Report Type: 
  Country: None (occurrence: None)
  Receive Date: 20040603
  Receipt Date: 20040517
  Transmission Date: 20050107
  Serious: No
  Sender: FDA-Public Use
  Company Number: F04200400156

PATIENT
  Age: 57 Year
  Sex: Male

DRUGS (1)
  1. UROXATRAL [Suspect]
     Indication: BENIGN PROSTATIC HYPERPLASIA
     Dosage: 10 MG OD
     Route: 048
     Dates: start: 20040125, end: 20040125

REACTIONS (3)
  - CIRCULATORY COLLAPSE [None]
  - DIZZINESS [None]
  - LOSS OF CONSCIOUSNESS [None]
